FAERS Safety Report 4708866-2 (Version None)
Quarter: 2005Q3

REPORT INFORMATION
  Report Type: 
  Country: None (occurrence: None)
  Receive Date: 20050705
  Receipt Date: 20050620
  Transmission Date: 20060218
  Serious: Yes (Hospitalization)
  Sender: FDA-Public Use
  Company Number: 2005AL002353

PATIENT
  Age: 47 Year
  Sex: Male

DRUGS (7)
  1. SERAX [Suspect]
     Dosage: PO
     Route: 048
     Dates: start: 20050513, end: 20050513
  2. ALCOHOL ( {NULL}) [Suspect]
     Dosage: ORAL
     Route: 048
     Dates: start: 20050513, end: 20050513
  3. MEPRONIZINE ({NULL}) [Suspect]
     Dosage: PO
     Route: 048
     Dates: start: 20050513, end: 20050513
  4. SIMVASTATIN [Concomitant]
  5. PROZAC [Concomitant]
  6. PERINDOPRIL [Concomitant]
  7. ESOMPRAZOLE [Concomitant]

REACTIONS (5)
  - INTENTIONAL MISUSE [None]
  - OVERDOSE [None]
  - PNEUMONIA ASPIRATION [None]
  - RHABDOMYOLYSIS [None]
  - SUICIDE ATTEMPT [None]
